FAERS Safety Report 7279646-1 (Version None)
Quarter: 2011Q1

REPORT INFORMATION
  Report Type: 
  Country: None (occurrence: None)
  Receive Date: 20110208
  Receipt Date: 20110131
  Transmission Date: 20110831
  Serious: Yes (Hospitalization)
  Sender: FDA-Public Use
  Company Number: US-US-EMD SERONO, INC.-234741J09USA

PATIENT
  Sex: Female
  Weight: 59 kg

DRUGS (8)
  1. VITAMIN D [Concomitant]
     Indication: MULTIPLE SCLEROSIS
     Dates: start: 20090902
  2. REBIF [Suspect]
     Route: 058
     Dates: start: 20091223
  3. AMBIEN [Concomitant]
     Indication: INSOMNIA
     Route: 065
  4. IBUPROFEN [Concomitant]
     Indication: PREMEDICATION
     Route: 065
  5. VITAMIN C WITH DIHYDROQUERCETIN [Concomitant]
     Indication: PROPHYLAXIS
  6. REBIF [Suspect]
     Indication: MULTIPLE SCLEROSIS
     Route: 058
     Dates: start: 20091008, end: 20091216
  7. DOCOSAHEXANOIC ACID [Concomitant]
     Indication: MULTIPLE SCLEROSIS
     Dates: start: 20090902
  8. FISH OIL [Concomitant]
     Indication: PROPHYLAXIS
     Dates: start: 20090902

REACTIONS (4)
  - KIDNEY INFECTION [None]
  - ABDOMINAL PAIN UPPER [None]
  - VOMITING [None]
  - NAUSEA [None]
